FAERS Safety Report 17710144 (Version 2)
Quarter: 2020Q2

REPORT INFORMATION
  Report Type: Spontaneous
  Country: US (occurrence: US)
  Receive Date: 20200427
  Receipt Date: 20200430
  Transmission Date: 20200714
  Serious: Yes (Death, Hospitalization, Other)
  Sender: FDA-Public Use
  Company Number: US-BIOVITRUM-2020US1873

PATIENT
  Age: 77 Year
  Sex: Male

DRUGS (1)
  1. ANAKINRA [Suspect]
     Active Substance: ANAKINRA
     Indication: PRODUCT USED FOR UNKNOWN INDICATION

REACTIONS (12)
  - Nausea [Recovered/Resolved]
  - Hypotension [Unknown]
  - Sepsis [Fatal]
  - Asthenia [Recovered/Resolved]
  - Pneumonia [Unknown]
  - Central nervous system lesion [Unknown]
  - Fall [Unknown]
  - Hypomagnesaemia [Unknown]
  - Nausea [Unknown]
  - Vomiting [Recovered/Resolved]
  - Stenotrophomonas infection [Unknown]
  - Pyrexia [Unknown]

NARRATIVE: CASE EVENT DATE: 20200413
